FAERS Safety Report 14790891 (Version 5)
Quarter: 2021Q1

REPORT INFORMATION
  Report Type: Report from Study
  Country: FR (occurrence: FR)
  Receive Date: 20180423
  Receipt Date: 20210322
  Transmission Date: 20210419
  Serious: Yes (Death, Other)
  Sender: FDA-Public Use
  Company Number: FR-PFIZER INC-2018156132

PATIENT
  Sex: Female

DRUGS (9)
  1. NEULASTA [Concomitant]
     Active Substance: PEGFILGRASTIM
  2. DOCETAXEL. [Suspect]
     Active Substance: DOCETAXEL
     Dosage: UNK
  3. LEVOTHYROX [Concomitant]
     Active Substance: LEVOTHYROXINE
     Dosage: 1DF=100 UNIT NOS, ^100^ TOOK THE MORNING OF THE BLOCK
     Route: 065
  4. LYSANXIA [Concomitant]
     Active Substance: PRAZEPAM
  5. MOPRAL /00661201/ [Concomitant]
     Active Substance: OMEPRAZOLE SODIUM
  6. GAVISCON /00237601/ [Concomitant]
     Active Substance: ALUMINUM HYDROXIDE\MAGNESIUM CARBONATE
  7. PRIMPERAN [Concomitant]
     Active Substance: METOCLOPRAMIDE HYDROCHLORIDE
  8. NIVOLUMAB [Suspect]
     Active Substance: NIVOLUMAB
     Indication: LUNG NEOPLASM MALIGNANT
     Dosage: 138 MG, CYCLIC EVERY 2 WEEKS
     Route: 042
     Dates: start: 20170126, end: 20170601
  9. SOLUPRED /00016201/ [Concomitant]
     Active Substance: PREDNISOLONE

REACTIONS (13)
  - Fall [Unknown]
  - Dry skin [Recovered/Resolved]
  - Asthenia [Recovered/Resolved]
  - Back pain [Recovering/Resolving]
  - Chest pain [Not Recovered/Not Resolved]
  - Neutropenia [Recovered/Resolved]
  - Decreased appetite [Not Recovered/Not Resolved]
  - Vomiting [Not Recovered/Not Resolved]
  - Hypothyroidism [Recovered/Resolved]
  - Oedema peripheral [Not Recovered/Not Resolved]
  - Neoplasm progression [Fatal]
  - Nausea [Recovering/Resolving]
  - Nail toxicity [Recovered/Resolved]

NARRATIVE: CASE EVENT DATE: 20170209
